FAERS Safety Report 5490941-9 (Version None)
Quarter: 2007Q4

REPORT INFORMATION
  Report Type: 
  Country: None (occurrence: None)
  Receive Date: 20071019
  Receipt Date: 20071012
  Transmission Date: 20080405
  Serious: Yes (Life-Threatening, Hospitalization, Other)
  Sender: FDA-Public Use
  Company Number: CA-ASTRAZENECA-2007UW09311

PATIENT
  Age: 67 Year
  Sex: Female

DRUGS (12)
  1. CRESTOR [Interacting]
     Indication: DYSLIPIDAEMIA
     Route: 048
     Dates: start: 20060901
  2. CRESTOR [Interacting]
     Route: 048
     Dates: start: 20061108, end: 20070411
  3. EZETROL [Suspect]
     Indication: DYSLIPIDAEMIA
     Route: 048
     Dates: end: 20070411
  4. DILTIAZEM CD [Interacting]
     Route: 048
  5. INHIBACE [Concomitant]
     Route: 048
     Dates: end: 20070411
  6. ZANTAC [Concomitant]
     Route: 048
     Dates: start: 20070213
  7. ZANTAC [Concomitant]
     Route: 048
     Dates: start: 20070413
  8. DIDROCAL [Concomitant]
     Dosage: 1 TABLET
     Route: 048
     Dates: end: 20070413
  9. ADVAIR DISKUS 100/50 [Concomitant]
  10. BEROTEC [Concomitant]
     Route: 055
  11. GLUCOSAMINE [Concomitant]
  12. ASPIRIN [Concomitant]
     Route: 048

REACTIONS (12)
  - ABDOMINAL PAIN [None]
  - ALANINE AMINOTRANSFERASE INCREASED [None]
  - ASPARTATE AMINOTRANSFERASE INCREASED [None]
  - BLOOD CREATINE PHOSPHOKINASE INCREASED [None]
  - BLOOD CREATININE INCREASED [None]
  - BLOOD LACTATE DEHYDROGENASE INCREASED [None]
  - DEHYDRATION [None]
  - DRUG INTERACTION [None]
  - MUSCLE SPASMS [None]
  - NAUSEA [None]
  - RHABDOMYOLYSIS [None]
  - VOMITING [None]
